FAERS Safety Report 5310023-6 (Version None)
Quarter: 2007Q2

REPORT INFORMATION
  Report Type: 
  Country: None (occurrence: None)
  Receive Date: 20070427
  Receipt Date: 20070424
  Transmission Date: 20071010
  Serious: Yes (Death, Hospitalization)
  Sender: FDA-Public Use
  Company Number: US-GLAXOSMITHKLINE-A0641916A

PATIENT
  Age: 70 Year
  Sex: Male

DRUGS (26)
  1. ADVAIR DISKUS 100/50 [Suspect]
     Indication: EMPHYSEMA
     Dosage: 1PUFF TWICE PER DAY
     Route: 055
     Dates: start: 20030101
  2. PLAVIX [Concomitant]
  3. ISOSORBIDE MONONITRATE [Concomitant]
  4. ATENOLOL [Concomitant]
  5. PRAVACHOL [Concomitant]
  6. LISINOPRIL [Concomitant]
  7. GABAPENTIN [Concomitant]
  8. ZANTAC [Concomitant]
  9. COMBIVENT [Concomitant]
  10. SPIRIVA [Concomitant]
  11. NITROLINGUAL [Concomitant]
  12. CLORAZEPATE [Concomitant]
  13. FUROSEMIDE [Concomitant]
  14. SINGULAIR [Concomitant]
  15. TRAMADOL HCL [Concomitant]
  16. XOPENEX [Concomitant]
     Route: 055
  17. ASPIRIN [Concomitant]
  18. TYLENOL [Concomitant]
  19. L-ARGININE [Concomitant]
  20. METFORMIN HCL [Concomitant]
  21. NEXIUM [Concomitant]
  22. RESPA [Concomitant]
  23. PREDNISOLONE [Concomitant]
  24. ACTIMMUNE [Concomitant]
  25. VITAMIN B6 [Concomitant]
  26. OXYGEN [Concomitant]

REACTIONS (6)
  - BALANCE DISORDER [None]
  - DEATH [None]
  - FALL [None]
  - MUSCLE SPASMS [None]
  - PULMONARY FIBROSIS [None]
  - TREMOR [None]
